FAERS Safety Report 8483770-5 (Version None)
Quarter: 2012Q3

REPORT INFORMATION
  Report Type: 
  Country: None (occurrence: None)
  Receive Date: 20120703
  Receipt Date: 20120620
  Transmission Date: 20120928
  Serious: No
  Sender: FDA-Public Use
  Company Number: US-BIOGENIDEC-2012BI014799

PATIENT
  Age: 53 Year
  Sex: Female

DRUGS (4)
  1. ZYRTEC [Concomitant]
     Indication: PREMEDICATION
  2. TYSABRI [Suspect]
     Indication: MULTIPLE SCLEROSIS
     Route: 042
     Dates: start: 20050204
  3. ACETAMINOPHEN [Concomitant]
     Indication: PREMEDICATION
  4. TYSABRI [Suspect]
     Route: 042
     Dates: start: 20120222

REACTIONS (4)
  - DIZZINESS [None]
  - LOSS OF CONSCIOUSNESS [None]
  - ABDOMINAL DISCOMFORT [None]
  - PRESYNCOPE [None]
